FAERS Safety Report 8359575-2 (Version None)
Quarter: 2012Q2

REPORT INFORMATION
  Report Type: 
  Country: None (occurrence: None)
  Receive Date: 20120515
  Receipt Date: 20120504
  Transmission Date: 20120825
  Serious: Yes (Other)
  Sender: FDA-Public Use
  Company Number: MX-ELI_LILLY_AND_COMPANY-MX201205002566

PATIENT
  Sex: Male

DRUGS (3)
  1. HUMALOG MIX 75/25 [Suspect]
     Dosage: 25 IU, EACH EVENING
     Route: 058
     Dates: start: 20020101
  2. INSULIN [Concomitant]
     Dosage: UNK
     Dates: start: 19920101
  3. HUMALOG MIX 75/25 [Suspect]
     Indication: DIABETES MELLITUS
     Dosage: 45 IU, EACH MORNING
     Route: 058
     Dates: start: 20020101

REACTIONS (1)
  - BLISTER INFECTED [None]
